FAERS Safety Report 9137142 (Version 1)
Quarter: 2013Q1

REPORT INFORMATION
  Report Type: Spontaneous
  Country: US (occurrence: US)
  Receive Date: 20130304
  Receipt Date: 20130304
  Transmission Date: 20140127
  Serious: Yes (Other)
  Sender: FDA-Public Use
  Company Number: US-ASTRAZENECA-2011SE35089

PATIENT
  Age: 61 Year
  Sex: Male
  Weight: 135.6 kg

DRUGS (29)
  1. SEROQUEL [Suspect]
     Indication: INSOMNIA
     Route: 048
  2. SEROQUEL [Suspect]
     Indication: INSOMNIA
     Route: 048
  3. LISINOPRIL [Suspect]
     Route: 048
  4. PREDNISONE [Concomitant]
     Route: 048
  5. PREDNISONE [Concomitant]
     Route: 048
  6. PREDNISONE [Concomitant]
     Route: 048
  7. FLUTICASONE-SALMETEROL [Concomitant]
     Indication: DYSPNOEA
     Dosage: 200-250 MCG/DOSE INHALER, 1 PUFF INTO THE LUNGS 2 TIMES A DAY
     Route: 055
  8. WELLBUTRIN [Concomitant]
     Indication: DEPRESSION
     Route: 048
  9. PRAVASTATIN SODIUM [Concomitant]
     Route: 048
  10. LEVOXYL [Concomitant]
     Indication: THYROID DISORDER
     Route: 048
  11. ARICEPT [Concomitant]
     Indication: MEMORY IMPAIRMENT
     Route: 048
  12. ARICEPT [Concomitant]
     Indication: MEMORY IMPAIRMENT
     Route: 048
  13. TRIAMTERENE HCTZ [Concomitant]
     Indication: BLOOD PRESSURE
     Dosage: 75-50 MG, 0.5 TABLETS DAILY
     Route: 048
  14. TRIAMTERENE HCTZ [Concomitant]
     Indication: SWELLING
     Dosage: 75-50 MG, 0.5 TABLETS DAILY
     Route: 048
  15. TRAZODONE HCL [Concomitant]
     Indication: INSOMNIA
     Dosage: 2 TABLETS AT NIGHT AS NEEDED
     Route: 048
  16. ACTOPLUS MET XR [Concomitant]
     Indication: DIABETES MELLITUS
     Dosage: 15-1000 MG, A TABLET DAILY, ADD PLUS ONE ACTOS 30MG DAILY FOR TOTAL DOSE OF 45MG
     Route: 048
  17. ACTOS [Concomitant]
     Indication: DIABETES MELLITUS
     Route: 048
  18. CETIRIZINE HCL [Concomitant]
     Route: 048
  19. VITAMIN D [Concomitant]
     Dosage: 1000 UNITS
     Route: 048
  20. SINGULAIR [Concomitant]
     Indication: ASTHMA
     Route: 048
  21. ZANTAC [Concomitant]
     Indication: GASTROOESOPHAGEAL REFLUX DISEASE
     Route: 048
  22. TRICOR [Concomitant]
     Indication: BLOOD TRIGLYCERIDES
     Route: 048
  23. MOMETASONE FUROATE [Concomitant]
     Dosage: APPLY TO AFFECTED AREAS TWO TIMES AS REQUIRED
  24. PAXIL CR [Concomitant]
     Indication: AFFECTIVE DISORDER
  25. GLUCOSE BLOOD TEST STRIPS [Concomitant]
     Dosage: USE ONCE A DAY OR AS DIRECTED
  26. PATADAY [Concomitant]
     Dosage: ONE DROP ONCE A DAY IN BOTH EYES
     Route: 047
  27. GLUCOMETER ELITE CLASSICS [Concomitant]
     Dosage: PER PATIENT PREFERENCE
  28. ALBUTEROL [Concomitant]
     Indication: ASTHMA
     Dosage: 90 MCG/ACT IN AERS 1-2 PUFFS EVERY 4TH HOUR AS REQUIRED
  29. ASPIRIN EC [Concomitant]
     Route: 048

REACTIONS (4)
  - Asthma [Unknown]
  - Type 2 diabetes mellitus [Unknown]
  - Cough [Unknown]
  - Weight increased [Unknown]
